FAERS Safety Report 20077358 (Version 4)
Quarter: 2022Q2

REPORT INFORMATION
  Report Type: Spontaneous
  Country: US (occurrence: US)
  Receive Date: 20211116
  Receipt Date: 20220624
  Transmission Date: 20220721
  Serious: Yes (Other)
  Sender: FDA-Public Use
  Company Number: US-BAYER-2021A250200

PATIENT
  Age: 64 Year
  Sex: Male

DRUGS (3)
  1. KOGENATE FS [Suspect]
     Active Substance: ANTIHEMOPHILIC FACTOR, HUMAN RECOMBINANT
     Dosage: 1800 U
     Route: 042
  2. KOGENATE FS [Suspect]
     Active Substance: ANTIHEMOPHILIC FACTOR, HUMAN RECOMBINANT
     Dosage: USED 2 DOSES FOR THE RIGHT ANKLE BLEED
  3. KOGENATE FS [Suspect]
     Active Substance: ANTIHEMOPHILIC FACTOR, HUMAN RECOMBINANT
     Dosage: 1800 IU, TID, FOR THE LEFT ANKLE BLEED TREATMENT
     Route: 042
     Dates: start: 20211116

REACTIONS (4)
  - Haemarthrosis [None]
  - Haemarthrosis [Recovered/Resolved]
  - Haemorrhage [None]
  - Ligament sprain [None]

NARRATIVE: CASE EVENT DATE: 20211111
